FAERS Safety Report 22540674 (Version 1)
Quarter: 2023Q2

REPORT INFORMATION
  Report Type: Spontaneous
  Country: DZ (occurrence: DZ)
  Receive Date: 20230609
  Receipt Date: 20230609
  Transmission Date: 20230721
  Serious: Yes (Death)
  Sender: FDA-Public Use
  Company Number: DZ-drreddys-SPO/ALG/23/0166536

PATIENT
  Age: 14 Year
  Sex: Male

DRUGS (1)
  1. FOSAPREPITANT [Suspect]
     Active Substance: FOSAPREPITANT
     Indication: Vomiting

REACTIONS (3)
  - Cerebral haemorrhage [Fatal]
  - Product use issue [Unknown]
  - Product label issue [Unknown]
